FAERS Safety Report 15096457 (Version 3)
Quarter: 2018Q3

REPORT INFORMATION
  Report Type: Report from Study
  Country: CO (occurrence: CO)
  Receive Date: 20180702
  Receipt Date: 20180902
  Transmission Date: 20181010
  Serious: Yes (Other)
  Sender: FDA-Public Use
  Company Number: PHHY2018CO004685

PATIENT
  Sex: Male

DRUGS (1)
  1. VOTRIENT [Suspect]
     Active Substance: PAZOPANIB HYDROCHLORIDE
     Indication: METASTATIC RENAL CELL CARCINOMA
     Dosage: 800 MG, QD
     Route: 048
     Dates: start: 20180405

REACTIONS (6)
  - Underweight [Unknown]
  - Cyst [Recovered/Resolved]
  - Back pain [Unknown]
  - Spinal cord herniation [Unknown]
  - Spinal pain [Unknown]
  - Immunodeficiency [Unknown]
